FAERS Safety Report 5800714-2 (Version None)
Quarter: 2008Q3

REPORT INFORMATION
  Report Type: 
  Country: None (occurrence: None)
  Receive Date: 20080701
  Receipt Date: 20080617
  Transmission Date: 20090109
  Serious: Yes (Other)
  Sender: FDA-Public Use
  Company Number: DSU-2008-00884

PATIENT
  Sex: Female

DRUGS (1)
  1. OLMESARTAN MEDOXOMIL [Suspect]
     Indication: HYPERTENSION
     Dosage: 20 MG (20 MG,QD), PER ORAL
     Route: 048
     Dates: start: 20080101, end: 20080601

REACTIONS (3)
  - HALLUCINATION, VISUAL [None]
  - ILLUSION [None]
  - VISUAL IMPAIRMENT [None]
